FAERS Safety Report 8227815-6 (Version None)
Quarter: 2012Q1

REPORT INFORMATION
  Report Type: 
  Country: None (occurrence: None)
  Receive Date: 20120322
  Receipt Date: 20120319
  Transmission Date: 20120608
  Serious: Yes (Death)
  Sender: FDA-Public Use
  Company Number: FR-ROCHE-1050205

PATIENT
  Sex: Male

DRUGS (6)
  1. VENOFER [Concomitant]
     Indication: ANAEMIA
     Dosage: ONCE
     Route: 042
     Dates: start: 20120209, end: 20120209
  2. PEMETREXED DISODIUM [Suspect]
     Indication: NEOPLASM MALIGNANT
     Route: 042
     Dates: start: 20120209, end: 20120209
  3. ZOMETA [Concomitant]
     Indication: BONE DISORDER
     Route: 042
     Dates: end: 20120228
  4. AVASTIN [Suspect]
     Indication: NON-SMALL CELL LUNG CANCER
  5. CALCIUM CARBONATE [Concomitant]
     Indication: CALCIUM DEFICIENCY
     Dates: end: 20120228
  6. EPO [Concomitant]
     Indication: ANAEMIA
     Dosage: ONCE
     Route: 042
     Dates: start: 20120209, end: 20120209

REACTIONS (1)
  - FEBRILE BONE MARROW APLASIA [None]
